FAERS Safety Report 11155056 (Version 2)
Quarter: 2015Q2

REPORT INFORMATION
  Report Type: Spontaneous
  Country: JP (occurrence: JP)
  Receive Date: 20150602
  Receipt Date: 20150626
  Transmission Date: 20150821
  Serious: Yes (Hospitalization)
  Sender: FDA-Public Use
  Company Number: JP-ELI_LILLY_AND_COMPANY-JP201505009038

PATIENT
  Age: 70 Year
  Sex: Male

DRUGS (1)
  1. HUMALOG [Suspect]
     Active Substance: INSULIN LISPRO
     Indication: DIABETES MELLITUS
     Dosage: 46 IU, QD
     Route: 058

REACTIONS (5)
  - Hyperglycaemia [Unknown]
  - Neuroleptic malignant syndrome [Unknown]
  - Skin ulcer [Recovering/Resolving]
  - Acute kidney injury [Unknown]
  - Cutaneous amyloidosis [Recovering/Resolving]

NARRATIVE: CASE EVENT DATE: 201211
